FAERS Safety Report 9689435 (Version 1)
Quarter: 2013Q4

REPORT INFORMATION
  Report Type: Other
  Country: BA (occurrence: BA)
  Receive Date: 20131114
  Receipt Date: 20131114
  Transmission Date: 20140711
  Serious: Yes (Other)
  Sender: FDA-Public Use
  Company Number: BA-RB-060435-13

PATIENT
  Sex: Female

DRUGS (1)
  1. SUBOXONE TABLET [Suspect]
     Indication: DRUG DEPENDENCE
     Dosage: ROUTE OF ADMINISTRATION: TRANSSEMINAL; DOSING DETAILS UNKNOWN
     Route: 050

REACTIONS (2)
  - Exposure via father [Recovered/Resolved]
  - Abortion spontaneous [Recovered/Resolved]
